FAERS Safety Report 24280744 (Version 2)
Quarter: 2024Q3

REPORT INFORMATION
  Report Type: Report from Study
  Country: IN (occurrence: IN)
  Receive Date: 20240904
  Receipt Date: 20240924
  Transmission Date: 20241017
  Serious: Yes (Hospitalization)
  Sender: NOVARTIS
  Company Number: IN-002147023-NVSC2024IN168805

PATIENT
  Age: 2 Year
  Sex: Male
  Weight: 9.6 kg

DRUGS (7)
  1. ZOLGENSMA [Suspect]
     Active Substance: ONASEMNOGENE ABEPARVOVEC-XIOI
     Indication: Spinal muscular atrophy
     Dosage: 55.3 ML, ONCE/SINGLE
     Route: 042
     Dates: start: 20240522, end: 20240522
  2. PIPERACILLIN AND TAZOBACTAM [Concomitant]
     Active Substance: PIPERACILLIN SODIUM\TAZOBACTAM SODIUM
     Indication: Product used for unknown indication
     Dosage: 900 MG, TID
     Route: 042
     Dates: start: 20240717, end: 20240723
  3. PREDNISOLONE [Concomitant]
     Active Substance: PREDNISOLONE
     Indication: Infection prophylaxis
     Dosage: 10 ML, QD
     Route: 065
     Dates: start: 20240717
  4. PREDNISOLONE [Concomitant]
     Active Substance: PREDNISOLONE
     Dosage: 0.5 MG/KG, QD
     Route: 065
  5. PREDNISOLONE [Concomitant]
     Active Substance: PREDNISOLONE
     Dosage: 1.25 MG/KG, QD
     Route: 065
  6. PREDNISOLONE [Concomitant]
     Active Substance: PREDNISOLONE
     Dosage: 2 MG/KG, QD
     Route: 065
  7. LANSOPRAZOLE [Concomitant]
     Active Substance: LANSOPRAZOLE
     Indication: Product used for unknown indication
     Dosage: UNK
     Route: 065

REACTIONS (5)
  - Acute hepatic failure [Recovered/Resolved]
  - Constipation [Recovered/Resolved]
  - Oedema peripheral [Unknown]
  - Abdominal distension [Unknown]
  - Urine output decreased [Recovered/Resolved]

NARRATIVE: CASE EVENT DATE: 20240717
